FAERS Safety Report 9346523 (Version 1)
Quarter: 2013Q2

REPORT INFORMATION
  Report Type: Report from Study
  Country: ES (occurrence: ES)
  Receive Date: 20130613
  Receipt Date: 20130613
  Transmission Date: 20140414
  Serious: Yes (Hospitalization)
  Sender: FDA-Public Use
  Company Number: ES-CELGENEUS-144-21880-13060134

PATIENT
  Sex: Male

DRUGS (2)
  1. REVLIMID [Suspect]
     Indication: PLASMA CELL MYELOMA
     Dosage: 7.5 MILLIGRAM
     Route: 048
     Dates: start: 20121013, end: 20130329
  2. DEXAMETHASONE [Concomitant]
     Indication: PRODUCT USED FOR UNKNOWN INDICATION
     Dosage: 40 MILLIGRAM
     Route: 065

REACTIONS (2)
  - Haematotoxicity [Unknown]
  - Toxicity to various agents [Unknown]
